FAERS Safety Report 16967938 (Version 1)
Quarter: 2019Q4

REPORT INFORMATION
  Report Type: Spontaneous
  Country: FR (occurrence: FR)
  Receive Date: 20191028
  Receipt Date: 20191028
  Transmission Date: 20200122
  Serious: Yes (Other)
  Sender: FDA-Public Use
  Company Number: FR-009507513-1910FRA014150

PATIENT
  Age: 31 Year
  Sex: Male

DRUGS (1)
  1. KEYTRUDA [Suspect]
     Active Substance: PEMBROLIZUMAB
     Indication: MALIGNANT MELANOMA
     Dosage: 165 MILLIGRAM, QD
     Route: 041
     Dates: start: 20180420

REACTIONS (6)
  - Asthenia [Not Recovered/Not Resolved]
  - Thyroiditis [Not Recovered/Not Resolved]
  - Tremor [Recovered/Resolved]
  - Hyperthyroidism [Recovered/Resolved]
  - Irritability [Recovered/Resolved]
  - Palpitations [Recovered/Resolved]

NARRATIVE: CASE EVENT DATE: 20180619
